FAERS Safety Report 4354597-0 (Version None)
Quarter: 2004Q2

REPORT INFORMATION
  Report Type: 
  Country: None (occurrence: None)
  Receive Date: 20040503
  Receipt Date: 20040421
  Transmission Date: 20050107
  Serious: Yes (Other)
  Sender: FDA-Public Use
  Company Number: US-JNJFOC-20040405341

PATIENT
  Age: 55 Year
  Sex: Female

DRUGS (1)
  1. LEVAQUIN [Suspect]

REACTIONS (5)
  - DRUG TOXICITY [None]
  - FALL [None]
  - LUNG INJURY [None]
  - MENTAL STATUS CHANGES [None]
  - PSYCHOTIC DISORDER [None]
